FAERS Safety Report 9659462 (Version 3)
Quarter: 2013Q4

REPORT INFORMATION
  Report Type: Report from Study
  Country: DK (occurrence: DK)
  Receive Date: 20131031
  Receipt Date: 20131112
  Transmission Date: 20140711
  Serious: Yes (Life-Threatening, Hospitalization)
  Sender: FDA-Public Use
  Company Number: DK-ROCHE-1274789

PATIENT
  Age: 48 Year
  Sex: Female
  Weight: 54 kg

DRUGS (10)
  1. TRASTUZUMAB EMTANSINE [Suspect]
     Indication: BREAST CANCER METASTATIC
     Dosage: DATE OF LAST DOSE PRIOR TO ONSET OF PNEUMONIA: 21/AUG/2013.
     Route: 042
     Dates: start: 20130619
  2. TRASTUZUMAB EMTANSINE [Suspect]
     Dosage: LAST DOSE PRIOR TO SAE: 21/AUG/2013
     Route: 042
     Dates: start: 20130821
  3. GABAPENTIN [Concomitant]
     Dosage: VARIOUS DOSES WERE GIVEN.
     Route: 065
     Dates: start: 20130511
  4. BURANA [Concomitant]
     Dosage: VARIOUS DOSES WERE GIVEN.
     Route: 065
     Dates: start: 20130514
  5. XGEVA [Concomitant]
     Dosage: TOTAL DAILY DOSE: 120 EVERY FOUR.
     Route: 065
     Dates: start: 20130517
  6. PANTOLOC [Concomitant]
     Route: 065
     Dates: start: 20130619
  7. IBUPROFEN [Concomitant]
     Route: 065
     Dates: start: 201306
  8. MALFIN [Concomitant]
     Route: 065
     Dates: start: 201306
  9. AMITRIPTYLINE [Concomitant]
     Route: 065
     Dates: start: 201306
  10. NORITREN [Concomitant]
     Route: 065
     Dates: start: 20130909

REACTIONS (1)
  - Pneumonitis [Recovered/Resolved]
